FAERS Safety Report 21377185 (Version 1)
Quarter: 2022Q3

REPORT INFORMATION
  Report Type: Spontaneous
  Country: GR (occurrence: GR)
  Receive Date: 20220926
  Receipt Date: 20220926
  Transmission Date: 20221026
  Serious: Yes (Life-Threatening)
  Sender: FDA-Public Use
  Company Number: GR-ARBOR PHARMACEUTICALS, LLC-GR-2022ARB002137

PATIENT
  Age: 63 Year
  Sex: Female
  Weight: 56 kg

DRUGS (2)
  1. EDARBI [Suspect]
     Active Substance: AZILSARTAN KAMEDOXOMIL
     Indication: Tachycardia
     Dosage: 20 MILLIGRAM, QD
     Route: 065
  2. EDARBI [Suspect]
     Active Substance: AZILSARTAN KAMEDOXOMIL
     Indication: Arrhythmia

REACTIONS (4)
  - Haematoma [Not Recovered/Not Resolved]
  - Liver disorder [Not Recovered/Not Resolved]
  - Anaphylactic shock [Not Recovered/Not Resolved]
  - Undersensing [Not Recovered/Not Resolved]
